FAERS Safety Report 4682355-6 (Version None)
Quarter: 2005Q2

REPORT INFORMATION
  Report Type: 
  Country: None (occurrence: None)
  Receive Date: 20050606
  Receipt Date: 20050517
  Transmission Date: 20051028
  Serious: Yes (Death)
  Sender: FDA-Public Use
  Company Number: JP-BRISTOL-MYERS SQUIBB COMPANY-12972139

PATIENT
  Age: 63 Year
  Sex: Male

DRUGS (4)
  1. TAXOL [Suspect]
     Indication: LUNG NEOPLASM MALIGNANT
     Route: 042
     Dates: start: 20050201
  2. PARAPLATIN [Suspect]
     Indication: LUNG NEOPLASM MALIGNANT
     Route: 042
     Dates: start: 20050201
  3. RADIATION THERAPY [Concomitant]
     Indication: METASTASES TO BONE
     Dates: start: 20050201
  4. MORPHINE [Concomitant]

REACTIONS (1)
  - INTESTINAL PERFORATION [None]
